FAERS Safety Report 15482575 (Version 1)
Quarter: 2018Q4

REPORT INFORMATION
  Report Type: Spontaneous
  Country: GB (occurrence: GB)
  Receive Date: 20181010
  Receipt Date: 20181010
  Transmission Date: 20190205
  Serious: Yes (Hospitalization)
  Sender: FDA-Public Use
  Company Number: GB-PFIZER INC-2018400992

PATIENT
  Age: 30 Year
  Sex: Male

DRUGS (2)
  1. CODEINE [Concomitant]
     Active Substance: CODEINE
     Dosage: 30-60MG 4 TIMES DAILY
     Dates: start: 2013
  2. SERTRALINE HCL [Suspect]
     Active Substance: SERTRALINE HYDROCHLORIDE
     Indication: DEPRESSION
     Dosage: 100 MG, UNK
     Route: 048
     Dates: start: 20180824, end: 20180911

REACTIONS (2)
  - Disorientation [Unknown]
  - Confusional state [Recovering/Resolving]
